FAERS Safety Report 10928580 (Version 2)
Quarter: 2015Q2

REPORT INFORMATION
  Report Type: Spontaneous
  Country: US (occurrence: US)
  Receive Date: 20150319
  Receipt Date: 20150524
  Transmission Date: 20150821
  Serious: No
  Sender: FDA-Public Use
  Company Number: US-JNJFOC-20121114753

PATIENT
  Sex: Female
  Weight: 61.24 kg

DRUGS (2)
  1. CONCERTA [Suspect]
     Active Substance: METHYLPHENIDATE HYDROCHLORIDE
     Indication: ATTENTION DEFICIT/HYPERACTIVITY DISORDER
     Route: 048
     Dates: start: 201208
  2. CONCERTA [Suspect]
     Active Substance: METHYLPHENIDATE HYDROCHLORIDE
     Indication: ATTENTION DEFICIT/HYPERACTIVITY DISORDER
     Route: 048
     Dates: start: 2009, end: 201208

REACTIONS (13)
  - Stress [Not Recovered/Not Resolved]
  - Discomfort [Unknown]
  - Vomiting [Unknown]
  - Anxiety [Not Recovered/Not Resolved]
  - Sleep disorder [Not Recovered/Not Resolved]
  - Lactose intolerance [Not Recovered/Not Resolved]
  - Nausea [Unknown]
  - Therapy change [Unknown]
  - Abdominal pain upper [Recovered/Resolved]
  - Initial insomnia [Not Recovered/Not Resolved]
  - Menstruation irregular [Not Recovered/Not Resolved]
  - Educational problem [Not Recovered/Not Resolved]
  - Educational problem [Unknown]

NARRATIVE: CASE EVENT DATE: 2010
